FAERS Safety Report 20197097 (Version 2)
Quarter: 2022Q3

REPORT INFORMATION
  Report Type: Spontaneous
  Country: US (occurrence: US)
  Receive Date: 20211217
  Receipt Date: 20220807
  Transmission Date: 20221027
  Serious: Yes (Other)
  Sender: FDA-Public Use
  Company Number: US-JNJFOC-20211230626

PATIENT
  Age: 63 Year
  Sex: Female

DRUGS (10)
  1. ELMIRON [Suspect]
     Active Substance: PENTOSAN POLYSULFATE SODIUM
     Indication: Cystitis interstitial
     Dosage: 300MG PER DAY
     Route: 048
     Dates: start: 1999, end: 2011
  2. ELMIRON [Suspect]
     Active Substance: PENTOSAN POLYSULFATE SODIUM
     Dosage: 300MG PER DAY
     Route: 048
     Dates: start: 20110504, end: 20110606
  3. ELMIRON [Suspect]
     Active Substance: PENTOSAN POLYSULFATE SODIUM
     Dosage: 300MG PER DAY
     Route: 048
     Dates: start: 20110630, end: 20110630
  4. ELMIRON [Suspect]
     Active Substance: PENTOSAN POLYSULFATE SODIUM
     Dosage: 400MG PER DAY
     Route: 048
     Dates: start: 2015, end: 202003
  5. DIAZEPAM [Concomitant]
     Active Substance: DIAZEPAM
     Indication: Cystitis interstitial
     Dates: start: 20130822, end: 20140206
  6. DIAZEPAM [Concomitant]
     Active Substance: DIAZEPAM
     Dates: start: 20140301, end: 20200416
  7. RESTASIS [Concomitant]
     Active Substance: CYCLOSPORINE
     Dates: start: 20120501, end: 20130411
  8. RESTASIS [Concomitant]
     Active Substance: CYCLOSPORINE
     Dates: start: 20130715, end: 20191212
  9. HYDROXYZINE [Concomitant]
     Active Substance: HYDROXYZINE HYDROCHLORIDE
     Indication: Cystitis interstitial
     Dates: start: 20160307, end: 20181004
  10. HYDROXYZINE [Concomitant]
     Active Substance: HYDROXYZINE HYDROCHLORIDE
     Dates: start: 20181226, end: 20200229

REACTIONS (3)
  - Maculopathy [Unknown]
  - Vitreous detachment [Unknown]
  - Off label use [Unknown]

NARRATIVE: CASE EVENT DATE: 20141208
